FAERS Safety Report 22311427 (Version 1)
Quarter: 2023Q2

REPORT INFORMATION
  Report Type: Spontaneous
  Country: IT (occurrence: IT)
  Receive Date: 20230511
  Receipt Date: 20230511
  Transmission Date: 20230722
  Serious: Yes (Hospitalization)
  Sender: FDA-Public Use
  Company Number: None

PATIENT
  Age: 3 Year
  Sex: Female
  Weight: 14 kg

DRUGS (2)
  1. AMOXICILLIN [Suspect]
     Active Substance: AMOXICILLIN
     Indication: Beta haemolytic streptococcal infection
     Dosage: UNK, TOTAL (FREQUENZA SOMMINISTRAZIONE: TOTALE VIA SOMMINISTRAZIONE: ORALE)
     Route: 048
     Dates: start: 20230324, end: 20230325
  2. CETIRIZINE HYDROCHLORIDE [Concomitant]
     Active Substance: CETIRIZINE HYDROCHLORIDE
     Indication: Angioedema
     Dosage: UNK (VIA SOMMINISTRAZIONE: ORALE)
     Route: 048

REACTIONS (3)
  - Dyspnoea [Recovered/Resolved]
  - Drug hypersensitivity [Recovered/Resolved]
  - Cough [Recovered/Resolved]

NARRATIVE: CASE EVENT DATE: 20230324
